FAERS Safety Report 6438124-X (Version None)
Quarter: 2009Q4

REPORT INFORMATION
  Report Type: 
  Country: None (occurrence: None)
  Receive Date: 20091109
  Receipt Date: 20091028
  Transmission Date: 20100525
  Serious: Yes (Other)
  Sender: FDA-Public Use
  Company Number: 8050213

PATIENT
  Age: 36 Year
  Sex: Male
  Weight: 71.5 kg

DRUGS (2)
  1. KEPPRA [Suspect]
     Indication: EPILEPSY
     Dosage: 1000 2/D PO
     Route: 048
     Dates: start: 20090616
  2. DEPAKENE [Concomitant]

REACTIONS (6)
  - ABNORMAL BEHAVIOUR [None]
  - AGGRESSION [None]
  - ALOPECIA [None]
  - MEMORY IMPAIRMENT [None]
  - SUICIDAL IDEATION [None]
  - WEIGHT DECREASED [None]
